FAERS Safety Report 25226939 (Version 1)
Quarter: 2025Q2

REPORT INFORMATION
  Report Type: Spontaneous
  Country: PT (occurrence: PT)
  Receive Date: 20250422
  Receipt Date: 20250422
  Transmission Date: 20250716
  Serious: Yes (Other)
  Sender: MYLAN
  Company Number: PT-ORESUND-25OPAJY0247P

PATIENT
  Age: 67 Year
  Sex: Male

DRUGS (28)
  1. METHOTREXATE [Suspect]
     Active Substance: METHOTREXATE
     Indication: Skin lesion
  2. METHOTREXATE [Suspect]
     Active Substance: METHOTREXATE
     Route: 065
  3. METHOTREXATE [Suspect]
     Active Substance: METHOTREXATE
     Route: 065
  4. METHOTREXATE [Suspect]
     Active Substance: METHOTREXATE
  5. DOXYCYCLINE [Suspect]
     Active Substance: DOXYCYCLINE
     Indication: Lyme disease
  6. DOXYCYCLINE [Suspect]
     Active Substance: DOXYCYCLINE
     Route: 065
  7. DOXYCYCLINE [Suspect]
     Active Substance: DOXYCYCLINE
     Route: 065
  8. DOXYCYCLINE [Suspect]
     Active Substance: DOXYCYCLINE
  9. HYDROXYCHLOROQUINE [Suspect]
     Active Substance: HYDROXYCHLOROQUINE
     Indication: Skin lesion
  10. HYDROXYCHLOROQUINE [Suspect]
     Active Substance: HYDROXYCHLOROQUINE
     Route: 065
  11. HYDROXYCHLOROQUINE [Suspect]
     Active Substance: HYDROXYCHLOROQUINE
     Route: 065
  12. HYDROXYCHLOROQUINE [Suspect]
     Active Substance: HYDROXYCHLOROQUINE
  13. PREDNISOLONE [Suspect]
     Active Substance: PREDNISOLONE
     Indication: VEXAS syndrome
     Dosage: 0.5 MILLIGRAM/KILOGRAM, QD (0.5 MG/KG/DAY )
     Route: 065
  14. PREDNISOLONE [Suspect]
     Active Substance: PREDNISOLONE
     Dosage: 0.5 MILLIGRAM/KILOGRAM, QD (0.5 MG/KG/DAY )
  15. PREDNISOLONE [Suspect]
     Active Substance: PREDNISOLONE
     Dosage: 0.5 MILLIGRAM/KILOGRAM, QD (0.5 MG/KG/DAY )
  16. PREDNISOLONE [Suspect]
     Active Substance: PREDNISOLONE
     Dosage: 0.5 MILLIGRAM/KILOGRAM, QD (0.5 MG/KG/DAY )
     Route: 065
  17. PREDNISOLONE [Suspect]
     Active Substance: PREDNISOLONE
     Dosage: 5 MILLIGRAM, QD
     Route: 065
  18. PREDNISOLONE [Suspect]
     Active Substance: PREDNISOLONE
     Dosage: 5 MILLIGRAM, QD
  19. PREDNISOLONE [Suspect]
     Active Substance: PREDNISOLONE
     Dosage: 5 MILLIGRAM, QD
  20. PREDNISOLONE [Suspect]
     Active Substance: PREDNISOLONE
     Dosage: 5 MILLIGRAM, QD
     Route: 065
  21. DAPSONE [Suspect]
     Active Substance: DAPSONE
     Indication: Skin lesion
  22. DAPSONE [Suspect]
     Active Substance: DAPSONE
     Route: 065
  23. DAPSONE [Suspect]
     Active Substance: DAPSONE
     Route: 065
  24. DAPSONE [Suspect]
     Active Substance: DAPSONE
  25. TOCILIZUMAB [Suspect]
     Active Substance: TOCILIZUMAB
     Indication: Skin lesion
  26. TOCILIZUMAB [Suspect]
     Active Substance: TOCILIZUMAB
     Route: 065
  27. TOCILIZUMAB [Suspect]
     Active Substance: TOCILIZUMAB
     Route: 065
  28. TOCILIZUMAB [Suspect]
     Active Substance: TOCILIZUMAB

REACTIONS (10)
  - Myelodysplastic syndrome [Recovering/Resolving]
  - Deep vein thrombosis [Unknown]
  - Pulmonary embolism [Unknown]
  - Neutropenia [Unknown]
  - Anaemia macrocytic [Unknown]
  - Blood product transfusion dependent [Recovering/Resolving]
  - Anaemia [Unknown]
  - Therapy change [Unknown]
  - Drug ineffective [Unknown]
  - Off label use [Unknown]
